FAERS Safety Report 16909360 (Version 1)
Quarter: 2019Q4

REPORT INFORMATION
  Report Type: Spontaneous
  Country: US (occurrence: US)
  Receive Date: 20191011
  Receipt Date: 20191011
  Transmission Date: 20200122
  Serious: Yes (Life-Threatening, Hospitalization, Other)
  Sender: FDA-Public Use
  Company Number: None

PATIENT
  Age: 4 Year
  Sex: Female
  Weight: 16.65 kg

DRUGS (1)
  1. LEVETIRACETAM. [Suspect]
     Active Substance: LEVETIRACETAM
     Indication: EPILEPSY
     Dosage: ?          QUANTITY:1.5 TABLET(S);?
     Route: 048

REACTIONS (4)
  - Product substitution issue [None]
  - Therapeutic response decreased [None]
  - Seizure [None]
  - Treatment failure [None]

NARRATIVE: CASE EVENT DATE: 20191011
